FAERS Safety Report 23723398 (Version 2)
Quarter: 2024Q2

REPORT INFORMATION
  Report Type: Spontaneous
  Country: JP (occurrence: JP)
  Receive Date: 20240409
  Receipt Date: 20240430
  Transmission Date: 20240716
  Serious: Yes (Other)
  Sender: FDA-Public Use
  Company Number: JP-AMERICAN REGENT INC-2024001233

PATIENT
  Age: 60 Year
  Sex: Female

DRUGS (2)
  1. FERINJECT [Suspect]
     Active Substance: FERRIC CARBOXYMALTOSE
     Indication: Anaemia
     Dosage: 1500 MILLIGRAM
     Route: 042
     Dates: start: 20240314, end: 20240314
  2. FERINJECT [Suspect]
     Active Substance: FERRIC CARBOXYMALTOSE
     Dosage: 1500 MILLIGRAM (SUBSEQUENT ADMINISTRATION)
     Route: 042
     Dates: start: 20240321, end: 20240321

REACTIONS (6)
  - Serum ferritin increased [Not Recovered/Not Resolved]
  - General physical health deterioration [Unknown]
  - Myalgia [Recovered/Resolved]
  - Tachycardia [Recovered/Resolved]
  - Chest pain [Recovered/Resolved]
  - Overdose [Unknown]

NARRATIVE: CASE EVENT DATE: 20240314
